FAERS Safety Report 4983465-6 (Version None)
Quarter: 2006Q2

REPORT INFORMATION
  Report Type: 
  Country: None (occurrence: None)
  Receive Date: 20060426
  Receipt Date: 20051201
  Transmission Date: 20061013
  Serious: Yes (Hospitalization)
  Sender: FDA-Public Use
  Company Number: US-MERCK-0512USA00492

PATIENT
  Age: 58 Year
  Sex: Male
  Weight: 91 kg

DRUGS (11)
  1. VIOXX [Suspect]
     Indication: ARTHRALGIA
     Route: 048
     Dates: start: 20030801, end: 20040201
  2. OXYCONTIN [Concomitant]
     Route: 065
  3. SINGULAIR [Concomitant]
     Route: 065
  4. LIPITOR [Concomitant]
     Route: 065
  5. ALLEGRA [Concomitant]
     Route: 065
  6. METOPROLOL [Concomitant]
     Route: 065
  7. ASPIRIN [Concomitant]
     Route: 065
  8. SEREVENT [Concomitant]
     Route: 065
  9. ATROVENT [Concomitant]
     Route: 065
  10. ALBUTEROL [Concomitant]
     Route: 065
  11. AZMACORT [Concomitant]
     Route: 065

REACTIONS (3)
  - HERNIA [None]
  - INJURY [None]
  - MYOCARDIAL INFARCTION [None]
